FAERS Safety Report 9740054 (Version 2)
Quarter: 2014Q1

REPORT INFORMATION
  Report Type: Spontaneous
  Country: IT (occurrence: IT)
  Receive Date: 20131209
  Receipt Date: 20140120
  Transmission Date: 20141002
  Serious: Yes (Hospitalization)
  Sender: FDA-Public Use
  Company Number: IT-BRISTOL-MYERS SQUIBB COMPANY-19874205

PATIENT
  Age: 73 Year
  Sex: Male

DRUGS (3)
  1. COUMADIN TABS 5 MG [Suspect]
     Indication: PULMONARY EMBOLISM
     Route: 048
     Dates: start: 20131015, end: 20131017
  2. CARDIOASPIRIN [Suspect]
     Indication: PULMONARY EMBOLISM
     Route: 048
     Dates: start: 20131015, end: 20131017
  3. HEPARIN SODIUM [Suspect]
     Indication: PULMONARY EMBOLISM
     Dosage: 25.000IU/5ML INFUSION SOLUTION
     Route: 042
     Dates: start: 20131015, end: 20131023

REACTIONS (1)
  - Anaemia [Recovering/Resolving]
